FAERS Safety Report 9122701 (Version 1)
Quarter: 2013Q1

REPORT INFORMATION
  Report Type: Spontaneous
  Country: US (occurrence: US)
  Receive Date: 20130227
  Receipt Date: 20130227
  Transmission Date: 20140127
  Serious: Yes (Hospitalization, Other)
  Sender: FDA-Public Use
  Company Number: US-PFIZER INC-2013069809

PATIENT
  Age: 51 Year
  Sex: Female
  Weight: 81.63 kg

DRUGS (2)
  1. CHANTIX [Suspect]
     Indication: SMOKING CESSATION THERAPY
     Dosage: 0.5 MG, 1X/DAY
     Dates: start: 201302
  2. OXYCODONE [Concomitant]
     Indication: PAIN
     Dosage: UNK

REACTIONS (3)
  - Blood phosphorus increased [Unknown]
  - Overdose [Unknown]
  - Drug intolerance [Unknown]
